FAERS Safety Report 19660150 (Version 2)
Quarter: 2021Q3

REPORT INFORMATION
  Report Type: Spontaneous
  Country: TW (occurrence: TW)
  Receive Date: 20210805
  Receipt Date: 20210813
  Transmission Date: 20211014
  Serious: Yes (Death)
  Sender: FDA-Public Use
  Company Number: NVSC2021TW175320

PATIENT
  Age: 51 Year
  Sex: Male
  Weight: 60 kg

DRUGS (1)
  1. CURAM [Suspect]
     Active Substance: AMOXICILLIN\CLAVULANATE POTASSIUM
     Indication: INFECTION
     Dosage: 1000 MG, Q12H
     Route: 048
     Dates: start: 20210628, end: 20210629

REACTIONS (4)
  - Rash [Fatal]
  - Sepsis [Fatal]
  - Epidermal necrosis [Fatal]
  - Death [Fatal]

NARRATIVE: CASE EVENT DATE: 20210628
